FAERS Safety Report 8328448-3 (Version None)
Quarter: 2012Q2

REPORT INFORMATION
  Report Type: 
  Country: None (occurrence: None)
  Receive Date: 20120502
  Receipt Date: 20120426
  Transmission Date: 20120825
  Serious: Yes (Hospitalization, Other)
  Sender: FDA-Public Use
  Company Number: MX-SANOFI-AVENTIS-2012SA029424

PATIENT
  Age: 52 Year
  Sex: Female
  Weight: 79 kg

DRUGS (10)
  1. CROMOLYN SODIUM [Concomitant]
     Route: 047
     Dates: start: 20120101
  2. MONTELUKAST [Concomitant]
     Route: 048
     Dates: start: 20120101
  3. ARAVA [Suspect]
     Route: 048
     Dates: start: 20111230
  4. CYMBALTA [Concomitant]
     Indication: RHEUMATOID ARTHRITIS
     Dosage: STRENGTH: 60 MG
     Route: 048
     Dates: start: 20090101
  5. ARAVA [Suspect]
     Indication: RHEUMATOID ARTHRITIS
     Route: 048
     Dates: start: 20090101, end: 20110601
  6. LYRICA [Concomitant]
     Indication: RHEUMATOID ARTHRITIS
     Route: 048
     Dates: start: 20090101
  7. IPRATROPIUM BROMIDE [Concomitant]
     Route: 055
     Dates: start: 20120101
  8. CORTISONE ACETATE [Suspect]
     Route: 065
  9. LORATADINE [Concomitant]
     Route: 048
     Dates: start: 20120101
  10. GLUCOSAMINE SULFATE [Concomitant]
     Indication: RHEUMATOID ARTHRITIS
     Route: 048
     Dates: start: 20090101

REACTIONS (3)
  - UNDERDOSE [None]
  - MEDICATION ERROR [None]
  - PLEURAL EFFUSION [None]
